FAERS Safety Report 9276417 (Version 1)
Quarter: 2013Q2

REPORT INFORMATION
  Report Type: Spontaneous
  Country: US (occurrence: US)
  Receive Date: 20130507
  Receipt Date: 20130507
  Transmission Date: 20140414
  Serious: No
  Sender: FDA-Public Use
  Company Number: US-009507513-1305USA001107

PATIENT
  Sex: Female

DRUGS (2)
  1. NEXPLANON [Suspect]
     Indication: CONTRACEPTION
     Dosage: UNK MG, UNK
     Dates: start: 201304, end: 201304
  2. NEXPLANON [Suspect]
     Dosage: 1 ROD UP TO 3 YEARS
     Route: 059
     Dates: start: 201304

REACTIONS (4)
  - Device difficult to use [Unknown]
  - Needle issue [Unknown]
  - Product quality issue [Unknown]
  - No adverse event [Unknown]
